FAERS Safety Report 14453513 (Version 1)
Quarter: 2018Q1

REPORT INFORMATION
  Report Type: Spontaneous
  Country: US (occurrence: US)
  Receive Date: 20180129
  Receipt Date: 20180129
  Transmission Date: 20180509
  Serious: Yes (Other)
  Sender: FDA-Public Use
  Company Number: US-PFIZER INC-2018033809

PATIENT
  Age: 48 Year
  Sex: Male

DRUGS (4)
  1. LEVOPHED [Suspect]
     Active Substance: NOREPINEPHRINE BITARTRATE
     Indication: HYPOTENSION
     Dosage: UNK, (4 MG DISSOLVED IN 1000 CC. OF DEXTROSE IN WATER AND GIVEN AT THE RATE OF 20 DROPS A MINUTE)
  2. LEVOPHED [Suspect]
     Active Substance: NOREPINEPHRINE BITARTRATE
     Dosage: UNK, (INFUSED AT THE RATE OF 20 DROPS A MINUTE, DISCONTINUED AFTER A TOTAL OF 100 CC)
  3. DEXTROSE. [Concomitant]
     Active Substance: DEXTROSE
     Dosage: UNK, (DISSOLVED IN 1000 CC IN WATER AND GIVEN AT THE RATE OF 20 DROPS A MINUTE)
  4. QUINIDINE [Concomitant]
     Active Substance: QUINIDINE
     Dosage: UNK
     Route: 030

REACTIONS (3)
  - Blister [Unknown]
  - Gangrene [Unknown]
  - Skin ulcer [Unknown]
